FAERS Safety Report 11693074 (Version 1)
Quarter: 2015Q4

REPORT INFORMATION
  Report Type: Spontaneous
  Country: US (occurrence: None)
  Receive Date: 20151102
  Receipt Date: 20151102
  Transmission Date: 20160304
  Serious: Yes (Disabling)
  Sender: FDA-Public Use
  Company Number: None

PATIENT
  Age: 25 Year
  Sex: Male
  Weight: 65 kg

DRUGS (1)
  1. ALBENDAZOL [Suspect]
     Active Substance: ALBENDAZOLE
     Indication: VISCERAL LARVA MIGRANS
     Dosage: 2 PILL
     Route: 048
     Dates: start: 20151026, end: 20151027

REACTIONS (5)
  - Pain [None]
  - Fatigue [None]
  - Chills [None]
  - Asthenia [None]
  - Pyrexia [None]

NARRATIVE: CASE EVENT DATE: 20151029
